FAERS Safety Report 7030795-2 (Version None)
Quarter: 2010Q4

REPORT INFORMATION
  Report Type: 
  Country: None (occurrence: None)
  Receive Date: 20101006
  Receipt Date: 20100930
  Transmission Date: 20110411
  Serious: No
  Sender: FDA-Public Use
  Company Number: US-PFIZER INC-2010124563

PATIENT
  Sex: Female

DRUGS (3)
  1. ESTRING [Suspect]
     Dosage: UNK
     Route: 067
     Dates: start: 20090101
  2. ESTRING [Suspect]
     Dosage: UNK
     Dates: end: 20100101
  3. SYNTHROID [Concomitant]
     Indication: THYROID DISORDER
     Dosage: 100 MG, DAILY

REACTIONS (3)
  - DISCOMFORT [None]
  - MIGRAINE [None]
  - PHOTOPHOBIA [None]
